FAERS Safety Report 25839826 (Version 1)
Quarter: 2025Q3

REPORT INFORMATION
  Report Type: Spontaneous
  Country: CN (occurrence: CN)
  Receive Date: 20250924
  Receipt Date: 20250924
  Transmission Date: 20251021
  Serious: Yes (Hospitalization, Disabling)
  Sender: NOVARTIS
  Company Number: CN-002147023-NVSC2025CN142373

PATIENT
  Age: 60 Year
  Sex: Female
  Weight: 60 kg

DRUGS (1)
  1. GLIVEC [Suspect]
     Active Substance: IMATINIB MESYLATE
     Indication: Gastric cancer
     Dosage: 400 MG, QD
     Route: 048
     Dates: start: 20250623, end: 20250824

REACTIONS (11)
  - Haemoglobin decreased [Recovering/Resolving]
  - Pulmonary oedema [Recovering/Resolving]
  - Eyelid oedema [Recovering/Resolving]
  - Asthenia [Recovering/Resolving]
  - Palpitations [Recovering/Resolving]
  - Face oedema [Recovering/Resolving]
  - Pallor [Recovering/Resolving]
  - Red blood cell count decreased [Recovering/Resolving]
  - Dizziness [Recovering/Resolving]
  - Dyspnoea [Recovering/Resolving]
  - Blood pressure increased [Unknown]

NARRATIVE: CASE EVENT DATE: 20250825
